FAERS Safety Report 9696730 (Version 2)
Quarter: 2013Q4

REPORT INFORMATION
  Report Type: Spontaneous
  Country: US (occurrence: US)
  Receive Date: 20131119
  Receipt Date: 20131119
  Transmission Date: 20140711
  Serious: No
  Sender: FDA-Public Use
  Company Number: US-GILEAD-2007-0014043

PATIENT
  Sex: Female

DRUGS (2)
  1. LETAIRIS [Suspect]
     Route: 048
     Dates: start: 20070718
  2. VENTAVIS [Concomitant]

REACTIONS (5)
  - Blood bilirubin increased [None]
  - Influenza like illness [None]
  - Presyncope [None]
  - Nasal congestion [None]
  - Nausea [None]
